FAERS Safety Report 19223831 (Version 1)
Quarter: 2021Q2

REPORT INFORMATION
  Report Type: Spontaneous
  Country: US (occurrence: US)
  Receive Date: 20210505
  Receipt Date: 20210505
  Transmission Date: 20210717
  Serious: No
  Sender: FDA-Public Use
  Company Number: US-ROCHE-2587976

PATIENT
  Sex: Male

DRUGS (6)
  1. OMEGA 3 [Concomitant]
     Active Substance: OMEGA-3 FATTY ACIDS
  2. ESBRIET [Suspect]
     Active Substance: PIRFENIDONE
     Indication: IDIOPATHIC PULMONARY FIBROSIS
     Dosage: 1 TABLET 3 TIMES A DAY PER WEEK, THEN 2 TABLETS 3 TIMES A DAY PER WEEK THEN 3 TABLETS 3 TIMES A DAY
     Route: 048
  3. FISH OIL [Concomitant]
     Active Substance: FISH OIL
  4. FINASTERIDE. [Concomitant]
     Active Substance: FINASTERIDE
  5. CALCIUM [Concomitant]
     Active Substance: CALCIUM
  6. OMEPRAZOLE. [Concomitant]
     Active Substance: OMEPRAZOLE

REACTIONS (1)
  - Hypertension [Not Recovered/Not Resolved]
